FAERS Safety Report 21406178 (Version 1)
Quarter: 2022Q4

REPORT INFORMATION
  Report Type: Spontaneous
  Country: US (occurrence: None)
  Receive Date: 20221003
  Receipt Date: 20221003
  Transmission Date: 20230112
  Serious: No
  Sender: FDA-Public Use
  Company Number: None

PATIENT
  Age: 46 Year
  Sex: Female
  Weight: 95.71 kg

DRUGS (1)
  1. COSENTYX [Suspect]
     Active Substance: SECUKINUMAB
     Indication: Psoriatic arthropathy
     Dosage: OTHER QUANTITY : 150MG (1 PEN);?FREQUENCY : AS DIRECTED;?
     Route: 058
     Dates: start: 202205

REACTIONS (3)
  - Infection [None]
  - Brain injury [None]
  - COVID-19 [None]
